FAERS Safety Report 6847672-X (Version None)
Quarter: 2010Q3

REPORT INFORMATION
  Report Type: 
  Country: None (occurrence: None)
  Receive Date: 20100716
  Receipt Date: 20100708
  Transmission Date: 20110219
  Serious: Yes (Other)
  Sender: FDA-Public Use
  Company Number: US-SANOFI-AVENTIS-2010SA040224

PATIENT
  Age: 50 Year
  Sex: Male

DRUGS (2)
  1. MULTAQ [Suspect]
     Route: 065
  2. WARFARIN SODIUM [Concomitant]

REACTIONS (1)
  - CARDIAC FAILURE [None]
